FAERS Safety Report 19362791 (Version 1)
Quarter: 2021Q2

REPORT INFORMATION
  Report Type: Report from Study
  Country: US (occurrence: US)
  Receive Date: 20210602
  Receipt Date: 20210602
  Transmission Date: 20210717
  Serious: Yes (Other)
  Sender: FDA-Public Use
  Company Number: NVSC2021US114705

PATIENT
  Sex: Female

DRUGS (1)
  1. GLATOPA [Suspect]
     Active Substance: GLATIRAMER ACETATE
     Indication: MULTIPLE SCLEROSIS
     Dosage: 40 MG
     Route: 065

REACTIONS (5)
  - Mental impairment [Unknown]
  - Injection site mass [Unknown]
  - Multiple sclerosis [Unknown]
  - Visual impairment [Unknown]
  - Memory impairment [Unknown]
